FAERS Safety Report 8440918-6 (Version None)
Quarter: 2012Q2

REPORT INFORMATION
  Report Type: 
  Country: None (occurrence: None)
  Receive Date: 20120615
  Receipt Date: 20120611
  Transmission Date: 20120825
  Serious: Yes (Life-Threatening, Hospitalization, Other)
  Sender: FDA-Public Use
  Company Number: US-ASTRAZENECA-2010SE17474

PATIENT
  Age: 21412 Day
  Sex: Male

DRUGS (8)
  1. ASPIRIN [Concomitant]
  2. SIMVASTATIN [Concomitant]
  3. SOTALOL HYDROCHLORIDE [Concomitant]
  4. NEXIUM [Suspect]
     Indication: BARRETT'S OESOPHAGUS
     Route: 048
  5. PRILOSEC [Suspect]
     Route: 048
  6. PLAVIX [Concomitant]
  7. LISINOPRIL [Suspect]
     Route: 048
  8. TEMAZEPAM [Concomitant]

REACTIONS (5)
  - CHOKING [None]
  - DYSPEPSIA [None]
  - MYOCARDIAL INFARCTION [None]
  - NOCTURNAL DYSPNOEA [None]
  - DRUG DOSE OMISSION [None]
